FAERS Safety Report 9397342 (Version 1)
Quarter: 2013Q3

REPORT INFORMATION
  Report Type: Spontaneous
  Country: US (occurrence: None)
  Receive Date: 20130711
  Receipt Date: 20130711
  Transmission Date: 20140515
  Serious: Yes (Hospitalization)
  Sender: FDA-Public Use
  Company Number: None

PATIENT
  Age: 62 Year
  Sex: Male
  Weight: 115.8 kg

DRUGS (1)
  1. CETUXIMAB (ERBITUX) (714692) [Suspect]

REACTIONS (13)
  - Fatigue [None]
  - Oral pain [None]
  - Product taste abnormal [None]
  - Dysphagia [None]
  - Odynophagia [None]
  - Fatigue [None]
  - Mucosal inflammation [None]
  - Constipation [None]
  - Nutritional supplementation [None]
  - Dehydration [None]
  - Weight decreased [None]
  - Lymphopenia [None]
  - Asthenia [None]
